FAERS Safety Report 6768640-2 (Version None)
Quarter: 2010Q2

REPORT INFORMATION
  Report Type: 
  Country: None (occurrence: None)
  Receive Date: 20100614
  Receipt Date: 20100610
  Transmission Date: 20101027
  Serious: Yes (Other)
  Sender: FDA-Public Use
  Company Number: US-CEPHALON-2010003153

PATIENT
  Age: 80 Year
  Sex: Male
  Weight: 82 kg

DRUGS (1)
  1. NUVIGIL [Suspect]
     Indication: SOMNOLENCE
     Route: 048
     Dates: start: 20100501, end: 20100609

REACTIONS (2)
  - CORNEAL DISORDER [None]
  - EYE OEDEMA [None]
